FAERS Safety Report 11253395 (Version 2)
Quarter: 2015Q3

REPORT INFORMATION
  Report Type: Spontaneous
  Country: FR (occurrence: None)
  Receive Date: 20150707
  Receipt Date: 20150713
  Transmission Date: 20151125
  Serious: Yes (Hospitalization)
  Sender: FDA-Public Use
  Company Number: FR-2015-2789

PATIENT
  Age: 7 Month
  Sex: Male

DRUGS (2)
  1. HEMANGIOL (PROPRANOLOL HYDROCHLORIDE) ORAL SOLUTION [Suspect]
     Active Substance: PROPRANOLOL HYDROCHLORIDE
     Indication: PRODUCT USED FOR UNKNOWN INDICATION
     Dates: start: 20141121, end: 20141212
  2. SECTRAL [Concomitant]
     Active Substance: ACEBUTOLOL HYDROCHLORIDE

REACTIONS (1)
  - Constipation [None]

NARRATIVE: CASE EVENT DATE: 20141122
